FAERS Safety Report 6994220-X (Version None)
Quarter: 2010Q3

REPORT INFORMATION
  Report Type: 
  Country: None (occurrence: None)
  Receive Date: 20100917
  Receipt Date: 20091002
  Transmission Date: 20110219
  Serious: No
  Sender: FDA-Public Use
  Company Number: US-ASTRAZENECA-2009SE17582

PATIENT
  Sex: Male

DRUGS (3)
  1. SEROQUEL [Suspect]
     Route: 048
     Dates: start: 20070701
  2. SEROQUEL [Suspect]
     Route: 048
     Dates: start: 20070101
  3. RISPERDAL [Suspect]
     Route: 048
     Dates: start: 20070701

REACTIONS (1)
  - WEIGHT FLUCTUATION [None]
